FAERS Safety Report 9588981 (Version 1)
Quarter: 2013Q4

REPORT INFORMATION
  Report Type: Spontaneous
  Country: US (occurrence: US)
  Receive Date: 20131003
  Receipt Date: 20131003
  Transmission Date: 20140711
  Serious: No
  Sender: FDA-Public Use
  Company Number: US-AMGEN-USASP2012067382

PATIENT
  Age: 52 Year
  Sex: Male
  Weight: 87.08 kg

DRUGS (7)
  1. ENBREL [Suspect]
     Indication: PSORIASIS
     Dosage: 50 MG, QWK
     Route: 058
  2. ENBREL [Suspect]
     Indication: PSORIATIC ARTHROPATHY
  3. FOLTX [Concomitant]
     Dosage: UNK
  4. LIPITOR [Concomitant]
     Dosage: 10 MG, UNK
  5. KLONOPIN [Concomitant]
     Dosage: 0.5 MG, UNK
  6. MULTIVITAMIN                       /07504101/ [Concomitant]
     Dosage: UNK
  7. VITAMIN C                          /00008001/ [Concomitant]
     Dosage: 500 MG, UNK

REACTIONS (1)
  - Psoriasis [Unknown]
